FAERS Safety Report 20517247 (Version 1)
Quarter: 2022Q1

REPORT INFORMATION
  Report Type: Spontaneous
  Country: US (occurrence: None)
  Receive Date: 20220224
  Receipt Date: 20220224
  Transmission Date: 20220424
  Serious: No
  Sender: FDA-Public Use
  Company Number: None

PATIENT
  Sex: Female

DRUGS (1)
  1. ESBRIET [Suspect]
     Active Substance: PIRFENIDONE
     Indication: Idiopathic pulmonary fibrosis
     Dosage: RX 2: TAKE 3 TABLETS BY MOUTH THREE TIMES DAILY WITH MEALS?
     Route: 048
     Dates: start: 20210701

REACTIONS (2)
  - Hospitalisation [None]
  - Therapy cessation [None]
